FAERS Safety Report 25969038 (Version 2)
Quarter: 2025Q4

REPORT INFORMATION
  Report Type: Spontaneous
  Country: GB (occurrence: GB)
  Receive Date: 20251028
  Receipt Date: 20251201
  Transmission Date: 20260118
  Serious: No
  Sender: PFIZER
  Company Number: GB-PFIZER INC-PV202500125081

PATIENT
  Sex: Female

DRUGS (1)
  1. GENOTROPIN [Suspect]
     Active Substance: SOMATROPIN
     Indication: Growth hormone deficiency
     Dosage: 0.5 MG, DAILY
     Route: 058

REACTIONS (3)
  - Drug dose omission by device [Unknown]
  - Device information output issue [Unknown]
  - Device mechanical issue [Unknown]
